FAERS Safety Report 15545473 (Version 2)
Quarter: 2019Q1

REPORT INFORMATION
  Report Type: Spontaneous
  Country: AT (occurrence: AT)
  Receive Date: 20181024
  Receipt Date: 20190329
  Transmission Date: 20190417
  Serious: Yes (Life-Threatening, Hospitalization, Other)
  Sender: FDA-Public Use
  Company Number: AT-ACCORD-089819

PATIENT
  Age: 72 Year
  Sex: Male

DRUGS (6)
  1. CALCIUM FOLINATE [Suspect]
     Active Substance: LEUCOVORIN CALCIUM
     Indication: ADENOCARCINOMA OF COLON
     Dosage: 400 MG/M2,
     Route: 040
     Dates: start: 201604
  2. BEVACIZUMAB. [Suspect]
     Active Substance: BEVACIZUMAB
     Indication: ADENOCARCINOMA OF COLON
     Dates: start: 201604
  3. IRINOTECAN [Suspect]
     Active Substance: IRINOTECAN
     Indication: ADENOCARCINOMA OF COLON
     Dates: start: 201605
  4. OXALIPLATIN. [Suspect]
     Active Substance: OXALIPLATIN
     Indication: ADENOCARCINOMA OF COLON
     Dosage: 85 MG/M2,
     Dates: start: 201604
  5. FLUOROURACIL. [Suspect]
     Active Substance: FLUOROURACIL
     Indication: ADENOCARCINOMA OF COLON
     Dosage: 400 MG/M2 AND 2400 MG/M2 THROUGH INTRAVENOUS DRIP
     Route: 040
     Dates: start: 201604
  6. LONSURF [Concomitant]
     Active Substance: TIPIRACIL HYDROCHLORIDE\TRIFLURIDINE

REACTIONS (5)
  - Angina pectoris [Unknown]
  - Arteriospasm coronary [Unknown]
  - Troponin increased [Unknown]
  - Hypertension [Unknown]
  - Diarrhoea [Unknown]
